FAERS Safety Report 5468605-7 (Version None)
Quarter: 2007Q3

REPORT INFORMATION
  Report Type: 
  Country: None (occurrence: None)
  Receive Date: 20070926
  Receipt Date: 20070919
  Transmission Date: 20080115
  Serious: Yes (Other)
  Sender: FDA-Public Use
  Company Number: PHBS2007JP15756

PATIENT
  Age: 12 Year
  Sex: Male

DRUGS (5)
  1. FLUDARABINE PHOSPHATE [Concomitant]
     Dosage: TOTAL: 125 MG/M2
  2. MELPHALAN [Concomitant]
     Dosage: TOTAL: 200 MG/M2
  3. GLEEVEC [Suspect]
     Indication: CHRONIC MYELOID LEUKAEMIA
     Dosage: 300 MG/DAY
     Route: 048
  4. METHOTREXATE [Suspect]
  5. CYCLOSPORINE [Suspect]
     Indication: STEM CELL TRANSPLANT

REACTIONS (3)
  - ACUTE GRAFT VERSUS HOST DISEASE [None]
  - BONE MARROW FAILURE [None]
  - STOMATITIS [None]
